FAERS Safety Report 23083565 (Version 1)
Quarter: 2023Q4

REPORT INFORMATION
  Report Type: Report from Study
  Country: FR (occurrence: FR)
  Receive Date: 20231019
  Receipt Date: 20231019
  Transmission Date: 20240109
  Serious: Yes (Other)
  Sender: FDA-Public Use
  Company Number: FR-MYLANLABS-2023M1109416

PATIENT
  Age: 44 Year
  Sex: Female

DRUGS (10)
  1. TEMOZOLOMIDE [Suspect]
     Active Substance: TEMOZOLOMIDE
     Indication: Astrocytoma
     Dosage: UNK
     Route: 065
  2. TEMOZOLOMIDE [Suspect]
     Active Substance: TEMOZOLOMIDE
     Indication: Isocitrate dehydrogenase gene mutation
  3. PROCARBAZINE HYDROCHLORIDE [Suspect]
     Active Substance: PROCARBAZINE HYDROCHLORIDE
     Indication: Astrocytoma
     Dosage: 60 MILLIGRAM/SQ. METER, CYCLE, FROM DAY 8 TO 21; PART OF PCV REGIMEN
     Route: 048
  4. PROCARBAZINE HYDROCHLORIDE [Suspect]
     Active Substance: PROCARBAZINE HYDROCHLORIDE
     Indication: Isocitrate dehydrogenase gene mutation
  5. LOMUSTINE [Suspect]
     Active Substance: LOMUSTINE
     Indication: Astrocytoma
     Dosage: UNK, CYCLE, AT DAY 1; PART OF PCV REGIMEN
     Route: 048
  6. LOMUSTINE [Suspect]
     Active Substance: LOMUSTINE
     Indication: Isocitrate dehydrogenase gene mutation
  7. VINCRISTINE [Suspect]
     Active Substance: VINCRISTINE
     Indication: Astrocytoma
     Dosage: 1.4 MILLIGRAM/SQ. METER, AT DAY 8 AND 29; PART OF PCV REGIMEN
     Route: 042
  8. VINCRISTINE [Suspect]
     Active Substance: VINCRISTINE
     Indication: Isocitrate dehydrogenase gene mutation
  9. IVOSIDENIB [Suspect]
     Active Substance: IVOSIDENIB
     Indication: Astrocytoma
     Dosage: UNK
     Route: 065
  10. IVOSIDENIB [Suspect]
     Active Substance: IVOSIDENIB
     Indication: Isocitrate dehydrogenase gene mutation

REACTIONS (1)
  - Drug ineffective [Unknown]
